FAERS Safety Report 9848792 (Version 1)
Quarter: 2014Q1

REPORT INFORMATION
  Report Type: Spontaneous
  Country: US (occurrence: None)
  Receive Date: 20140122
  Receipt Date: 20140122
  Transmission Date: 20141002
  Serious: Yes (Death)
  Sender: FDA-Public Use
  Company Number: 2137721

PATIENT
  Age: 41 Year
  Sex: Female

DRUGS (6)
  1. DIPHENHYDRAMINE [Suspect]
  2. LORAZEPAM [Suspect]
  3. CARISOPRODOL [Suspect]
  4. METHADONE [Suspect]
  5. CITALOPRAM [Suspect]
  6. ETHANOL [Suspect]

REACTIONS (3)
  - Respiratory arrest [None]
  - Cardiac arrest [None]
  - Accidental poisoning [None]
